FAERS Safety Report 9686365 (Version 1)
Quarter: 2013Q4

REPORT INFORMATION
  Report Type: Spontaneous
  Country: NL (occurrence: None)
  Receive Date: 20131108
  Receipt Date: 20131108
  Transmission Date: 20140711
  Serious: Yes (Other)
  Sender: FDA-Public Use
  Company Number: AUR-APL-2013-09265

PATIENT
  Age: 68 Year
  Sex: Female

DRUGS (1)
  1. PANTOPRAZOLE [Suspect]
     Dosage: 80 MG (40 MG,2 IN 1 D),ORAL
     Route: 048
     Dates: start: 2005, end: 20131018

REACTIONS (1)
  - Electrocardiogram QT prolonged [None]
